FAERS Safety Report 12399251 (Version 2)
Quarter: 2016Q2

REPORT INFORMATION
  Report Type: Other
  Country: DK (occurrence: CN)
  Receive Date: 20160524
  Receipt Date: 20160617
  Transmission Date: 20160815
  Serious: Yes (Hospitalization)
  Sender: FDA-Public Use
  Company Number: CN-FRI-1000084845

PATIENT
  Age: 16 Year
  Sex: Female

DRUGS (2)
  1. ESCITALOPRAM [Suspect]
     Active Substance: ESCITALOPRAM OXALATE
     Indication: ANOREXIA NERVOSA
     Dosage: 10 MG
     Route: 048
     Dates: start: 201105
  2. ESCITALOPRAM [Suspect]
     Active Substance: ESCITALOPRAM OXALATE
     Route: 048

REACTIONS (4)
  - Drug administered to patient of inappropriate age [Recovered/Resolved]
  - Drug-induced liver injury [Recovered/Resolved]
  - Product use issue [Recovered/Resolved]
  - Amenorrhoea [Unknown]
